FAERS Safety Report 10142346 (Version 4)
Quarter: 2014Q2

REPORT INFORMATION
  Report Type: Report from Study
  Country: DE (occurrence: DE)
  Receive Date: 20140430
  Receipt Date: 20140623
  Transmission Date: 20141212
  Serious: Yes (Death)
  Sender: FDA-Public Use
  Company Number: DE-BEH-2013039665

PATIENT
  Age: 66 Year
  Sex: Male
  Weight: 106 kg

DRUGS (22)
  1. PRIVIGEN [Suspect]
     Dosage: INFUSION RATE MINIMAL: 22.5 ML / MIN MAXIMAL INFUSION RATE: 150 ML / MIN
     Dates: start: 20130307, end: 20130307
  2. PRIVIGEN [Suspect]
     Dosage: INFUSION RATE MINIMAL: 22.5 ML / MIN MAXIMAL INFUSION RATE: 150 ML / MIN
     Dates: start: 20130307, end: 20130307
  3. PRIVIGEN [Suspect]
     Indication: NON-HODGKIN^S LYMPHOMA STAGE II
     Dosage: INFUSION RATE MINIMAL: 22.5 ML / MIN MAXIMAL INFUSION RATE: 150 ML / MIN
     Dates: start: 20130409, end: 20130409
  4. PRIVIGEN [Suspect]
     Dosage: INFUSION RATE MINIMAL: 22.5 ML / MIN MAXIMAL INFUSION RATE: 150 ML / MIN
     Dates: start: 20130409, end: 20130409
  5. PRIVIGEN [Suspect]
     Dosage: INFUSION RATE MINIMAL: 22.5 ML / MIN MAXIMAL INFUSION RATE: 150 ML / MIN
     Dates: start: 20130507, end: 20130507
  6. PRIVIGEN [Suspect]
     Dosage: INFUSION RATE MINIMAL: 22.5 ML / MIN MAXIMAL INFUSION RATE: 150 ML / MIN
     Dates: start: 20130507, end: 20130507
  7. PRIVIGEN [Suspect]
     Dosage: INFUSION RATE MINIMAL: 22.5 ML / MIN MAXIMAL INFUSION RATE: 150 ML / MIN
     Dates: start: 20130604, end: 20130604
  8. PRIVIGEN [Suspect]
     Dosage: INFUSION RATE MINIMAL: 22.5 ML / MIN MAXIMAL INFUSION RATE: 150 ML / MIN
     Dates: start: 20130604, end: 20130604
  9. PRIVIGEN [Suspect]
     Dosage: INFUSION RATE MINIMAL: 22.5 ML / MIN MAXIMAL INFUSION RATE: 150 ML / MIN
     Dates: start: 20130702, end: 20130702
  10. PRIVIGEN [Suspect]
     Dosage: INFUSION RATE MINIMAL: 22.5 ML / MIN MAXIMAL INFUSION RATE: 150 ML / MIN
     Dates: start: 20130702, end: 20130702
  11. PRIVIGEN [Suspect]
     Dates: start: 20130926, end: 20130926
  12. PRIVIGEN [Suspect]
     Dates: start: 20130926, end: 20130926
  13. PRIVIGEN [Suspect]
     Dosage: INFUSION RATE MINIMAL: 22.5 ML / MIN MAXIMAL INFUSION RATE: 150 ML / MIN
     Dates: start: 20131029, end: 20131029
  14. PRIVIGEN [Suspect]
     Dosage: INFUSION RATE MINIMAL: 22.5 ML / MIN MAXIMAL INFUSION RATE: 150 ML / MIN
     Dates: start: 20131029, end: 20131029
  15. PRIVIGEN [Suspect]
     Dosage: INFUSION RATE MINIMAL: 22.5 ML / MIN MAXIMAL INFUSION RATE: 150 ML / MIN
     Dates: start: 20131126, end: 20131126
  16. PRIVIGEN [Suspect]
     Dosage: INFUSION RATE MINIMAL: 22.5 ML / MIN MAXIMAL INFUSION RATE: 150 ML / MIN
     Dates: start: 20131126, end: 20131126
  17. PRIVIGEN [Suspect]
     Dosage: INFUSION RATE MINIMAL: 22.5 ML / MIN MAXIMAL INFUSION RATE: 150 ML / MIN
     Dates: start: 20140116, end: 20140116
  18. PRIVIGEN [Suspect]
     Dosage: INFUSION RATE MINIMAL: 22.5 ML / MIN MAXIMAL INFUSION RATE: 150 ML / MIN
     Dates: start: 20140116, end: 20140116
  19. PRIVIGEN [Suspect]
     Dosage: INFUSION RATE MINIMAL: 22.5 ML / MIN MAXIMAL INFUSION RATE: 150 ML / MIN
     Dates: start: 20140217, end: 20140217
  20. PRIVIGEN [Suspect]
     Dosage: INFUSION RATE MINIMAL: 22.5 ML / MIN MAXIMAL INFUSION RATE: 150 ML / MIN
     Dates: start: 20140217, end: 20140217
  21. PRIVIGEN [Suspect]
     Dosage: INFUSION RATE MINIMAL: 22.5 ML / MIN MAXIMAL INFUSION RATE: 150 ML / MIN
     Dates: start: 20140320, end: 20140320
  22. PRIVIGEN [Suspect]
     Dosage: INFUSION RATE MINIMAL: 22.5 ML / MIN MAXIMAL INFUSION RATE: 150 ML / MIN
     Dates: start: 20140320, end: 20140320

REACTIONS (1)
  - Neoplasm [Fatal]
